FAERS Safety Report 5801165-7 (Version None)
Quarter: 2008Q3

REPORT INFORMATION
  Report Type: 
  Country: None (occurrence: None)
  Receive Date: 20080707
  Receipt Date: 20080702
  Transmission Date: 20090109
  Serious: Yes (Life-Threatening, Hospitalization, Other)
  Sender: FDA-Public Use
  Company Number: PHBS2007BE19498

PATIENT
  Sex: Male

DRUGS (3)
  1. EXFORGE [Suspect]
     Indication: HYPERTENSION
     Dosage: VALS 80 / AMLO 5 MG/DAY
     Route: 048
     Dates: start: 20071126
  2. EMCONCOR [Concomitant]
     Dosage: 5 MG, UNK
  3. PARIET [Concomitant]

REACTIONS (16)
  - ATRIOVENTRICULAR BLOCK SECOND DEGREE [None]
  - CARDIAC FAILURE [None]
  - CARDIAC PACEMAKER INSERTION [None]
  - CARDIO-RESPIRATORY ARREST [None]
  - CHEST DISCOMFORT [None]
  - COUGH [None]
  - DYSPNOEA [None]
  - FATIGUE [None]
  - HYPERTENSION [None]
  - JUGULAR VEIN DISTENSION [None]
  - NAUSEA [None]
  - OEDEMA PERIPHERAL [None]
  - ORTHOPNOEA [None]
  - PLEURAL EFFUSION [None]
  - ULTRASOUND SCAN ABNORMAL [None]
  - WEIGHT INCREASED [None]
